FAERS Safety Report 18748290 (Version 9)
Quarter: 2021Q4

REPORT INFORMATION
  Report Type: Report from Study
  Country: IL (occurrence: IL)
  Receive Date: 20210115
  Receipt Date: 20211028
  Transmission Date: 20220303
  Serious: Yes (Hospitalization)
  Sender: FDA-Public Use
  Company Number: IL-KARYOPHARM-2020KPT001629

PATIENT
  Age: 68 Year
  Sex: Male
  Weight: 57.1 kg

DRUGS (8)
  1. SELINEXOR [Suspect]
     Active Substance: SELINEXOR
     Indication: Non-small cell lung cancer
     Dosage: 60 MG, WEEKLY
     Route: 048
     Dates: start: 20201117
  2. DOCETAXEL [Suspect]
     Active Substance: DOCETAXEL
     Indication: Non-small cell lung cancer
     Dosage: 75 MG/M2, 1X/3 WEEKS
     Route: 042
     Dates: start: 20201117
  3. COSOPT [Concomitant]
     Active Substance: DORZOLAMIDE HYDROCHLORIDE\TIMOLOL MALEATE
     Indication: Product used for unknown indication
     Dosage: 5 ML, BID
     Dates: start: 2020
  4. V DALGIN [Concomitant]
     Indication: Product used for unknown indication
     Dosage: 1.25 G/ML, QD
     Route: 048
     Dates: start: 202008
  5. ZALDIAR [Concomitant]
     Active Substance: ACETAMINOPHEN\TRAMADOL HYDROCHLORIDE
     Indication: Product used for unknown indication
     Dosage: 37.5 MG, PRN
     Route: 048
     Dates: start: 20201108
  6. METAMIZOLE [Concomitant]
     Active Substance: METAMIZOLE
     Indication: Product used for unknown indication
     Dosage: 500 MG/ML, QD
     Route: 048
     Dates: start: 202008
  7. GLUCAMIN [Concomitant]
     Indication: Product used for unknown indication
     Dosage: 850 MG, TID
     Route: 048
     Dates: start: 2000
  8. FOLIC ACID [Concomitant]
     Active Substance: FOLIC ACID
     Indication: Prophylaxis
     Dosage: 400 UG, QD
     Route: 048
     Dates: start: 202005

REACTIONS (1)
  - Delirium [Not Recovered/Not Resolved]

NARRATIVE: CASE EVENT DATE: 20201227
